FAERS Safety Report 9537313 (Version 2)
Quarter: 2013Q3

REPORT INFORMATION
  Report Type: Spontaneous
  Country: US (occurrence: US)
  Receive Date: 20130919
  Receipt Date: 20130919
  Transmission Date: 20140515
  Serious: Yes (Hospitalization)
  Sender: FDA-Public Use
  Company Number: US-LUNDBECK-DKLU1087265

PATIENT
  Age: 1 Year
  Sex: Male

DRUGS (6)
  1. SABRIL (FOR ORAL SOLUTION) [Suspect]
     Indication: INFANTILE SPASMS
     Dates: start: 20121031
  2. SABRIL (FOR ORAL SOLUTION) [Suspect]
     Dates: start: 20121031
  3. ACTH [Concomitant]
     Indication: PRODUCT USED FOR UNKNOWN INDICATION
  4. VALIUM [Concomitant]
     Indication: PRODUCT USED FOR UNKNOWN INDICATION
  5. KEPPRA [Concomitant]
     Indication: PRODUCT USED FOR UNKNOWN INDICATION
  6. TOPAMAX [Concomitant]
     Indication: PRODUCT USED FOR UNKNOWN INDICATION

REACTIONS (2)
  - Respiratory disorder [Not Recovered/Not Resolved]
  - Respiratory distress [Unknown]
